FAERS Safety Report 5444233-4 (Version None)
Quarter: 2007Q3

REPORT INFORMATION
  Report Type: 
  Country: None (occurrence: None)
  Receive Date: 20070904
  Receipt Date: 20070904
  Transmission Date: 20080115
  Serious: No
  Sender: FDA-Public Use
  Company Number: None

PATIENT
  Age: 51 Year
  Sex: Female

DRUGS (1)
  1. LEVAQUIN [Suspect]
     Indication: BRONCHITIS
     Dosage: 500MG QD PO
     Route: 048
     Dates: start: 20070515, end: 20070520

REACTIONS (2)
  - ANOSMIA [None]
  - VIRAL INFECTION [None]
